FAERS Safety Report 9064688 (Version 2)
Quarter: 2013Q2

REPORT INFORMATION
  Report Type: Spontaneous
  Country: FR (occurrence: FR)
  Receive Date: 20130130
  Receipt Date: 20130410
  Transmission Date: 20140414
  Serious: Yes (Other)
  Sender: FDA-Public Use
  Company Number: FR-TEVA-373338ISR

PATIENT
  Age: 55 Year
  Sex: Female

DRUGS (2)
  1. AZILECT [Suspect]
     Indication: PARKINSON^S DISEASE
     Dosage: 1 MILLIGRAM DAILY;
     Route: 048
     Dates: start: 201202
  2. MODOPAR [Concomitant]
     Indication: PARKINSON^S DISEASE
     Dosage: 3 DOSAGE FORMS DAILY; UNIT DOSE= 62.5MG: BENSERAZIDE HYDROCHLORIDE 12.5MG; LEVODOPA 50MG
     Route: 048
     Dates: start: 201202, end: 201301

REACTIONS (1)
  - Pigmentation disorder [Not Recovered/Not Resolved]
